FAERS Safety Report 24671227 (Version 1)
Quarter: 2024Q4

REPORT INFORMATION
  Report Type: Spontaneous
  Country: US (occurrence: None)
  Receive Date: 20241127
  Receipt Date: 20241127
  Transmission Date: 20250114
  Serious: Yes (Hospitalization)
  Sender: Public
  Company Number: None

PATIENT
  Sex: Female

DRUGS (9)
  1. GLEOSTINE [Suspect]
     Active Substance: LOMUSTINE
     Indication: Brain neoplasm malignant
     Dosage: OTHER FREQUENCY : DON^T REPEAT FOR AT LEAST 8 WKS., REPEAT FOR 6 CYC;?
     Route: 048
     Dates: end: 20240629
  2. MATULANE [Suspect]
     Active Substance: PROCARBAZINE HYDROCHLORIDE
  3. ATORVASTATIN [Concomitant]
     Active Substance: ATORVASTATIN
  4. BUPRENORPHIN DIS [Concomitant]
  5. GABAPENTIN [Concomitant]
     Active Substance: GABAPENTIN
  6. HYDROCHLOROTHIAZIDE [Concomitant]
     Active Substance: HYDROCHLOROTHIAZIDE
  7. LIDO/PRILOCN CRE [Concomitant]
  8. LISINOPRIL [Concomitant]
     Active Substance: LISINOPRIL
  9. SENNA-TIME [Concomitant]
     Active Substance: SENNOSIDES

REACTIONS (3)
  - Chest pain [None]
  - Anaemia [None]
  - Therapy interrupted [None]
